FAERS Safety Report 9430513 (Version 1)
Quarter: 2013Q3

REPORT INFORMATION
  Report Type: Spontaneous
  Country: DE (occurrence: DE)
  Receive Date: 20130730
  Receipt Date: 20130730
  Transmission Date: 20140515
  Serious: Yes (Hospitalization, Congenital Anomaly)
  Sender: FDA-Public Use
  Company Number: DE-GLAXOSMITHKLINE-D0080645A

PATIENT
  Sex: Male
  Weight: 3 kg

DRUGS (6)
  1. SALBUTAMOL [Suspect]
     Indication: BRONCHITIS
     Route: 064
     Dates: start: 20070727, end: 20070802
  2. ROXITHROMYCIN [Suspect]
     Indication: BRONCHITIS
     Dosage: 300MG PER DAY
     Route: 064
     Dates: start: 20070727, end: 20070802
  3. ZOLOFT [Suspect]
     Indication: DEPRESSION
     Route: 064
  4. BUDES [Suspect]
     Indication: BRONCHITIS
     Dosage: .4MG TWICE PER DAY
     Route: 064
     Dates: start: 20070727, end: 20070802
  5. VITAMIN B12/FOLIC ACID [Concomitant]
     Indication: PROPHYLAXIS OF NEURAL TUBE DEFECT
     Route: 064
  6. IODINE [Concomitant]
     Indication: PROPHYLAXIS OF NEURAL TUBE DEFECT
     Route: 064

REACTIONS (13)
  - Congenital multiplex arthrogryposis [Not Recovered/Not Resolved]
  - Talipes [Unknown]
  - Developmental hip dysplasia [Not Recovered/Not Resolved]
  - Limb hypoplasia congenital [Not Recovered/Not Resolved]
  - Macrocephaly [Unknown]
  - Cryptorchism [Recovered/Resolved with Sequelae]
  - Strabismus [Recovered/Resolved with Sequelae]
  - Limb malformation [Not Recovered/Not Resolved]
  - Femur fracture [Unknown]
  - Dysmorphism [Not Recovered/Not Resolved]
  - Muscular weakness [Unknown]
  - Motor developmental delay [Unknown]
  - Strabismus [Unknown]
